FAERS Safety Report 20936092 (Version 1)
Quarter: 2022Q2

REPORT INFORMATION
  Report Type: Spontaneous
  Country: US (occurrence: None)
  Receive Date: 20220609
  Receipt Date: 20220609
  Transmission Date: 20220721
  Serious: No
  Sender: FDA-Public Use
  Company Number: US-ROCHE-2837642

PATIENT
  Sex: Female

DRUGS (3)
  1. ACTEMRA [Suspect]
     Active Substance: TOCILIZUMAB
     Indication: Rheumatoid arthritis
     Dosage: 162 MG/0.9 M
     Route: 058
     Dates: start: 202104
  2. ACTEMRA [Suspect]
     Active Substance: TOCILIZUMAB
  3. CIMZIA [Concomitant]
     Active Substance: CERTOLIZUMAB PEGOL

REACTIONS (2)
  - Joint swelling [Unknown]
  - Arthralgia [Unknown]
